FAERS Safety Report 23096724 (Version 1)
Quarter: 2023Q4

REPORT INFORMATION
  Report Type: Spontaneous
  Country: ES (occurrence: ES)
  Receive Date: 20231023
  Receipt Date: 20231023
  Transmission Date: 20240110
  Serious: Yes (Hospitalization, Other)
  Sender: FDA-Public Use
  Company Number: None

PATIENT
  Age: 82 Year
  Sex: Male
  Weight: 104 kg

DRUGS (5)
  1. ERTAPENEM SODIUM [Suspect]
     Active Substance: ERTAPENEM SODIUM
     Indication: Urinary tract infection
     Dosage: 1 GRAM EVERY 24 HOURS
     Route: 042
     Dates: start: 20230917, end: 20230922
  2. OMEPRAZOLE [Suspect]
     Active Substance: OMEPRAZOLE
     Indication: Duodenal ulcer haemorrhage
     Dosage: 40 MILLIGRAMS PER DAY
     Route: 048
     Dates: start: 20230829
  3. UREA [Concomitant]
     Active Substance: UREA
     Indication: Hyponatraemia
     Dosage: 30 GRAMS PER DAY
     Route: 048
     Dates: start: 20230831
  4. METHYLPREDNISOLONE [Concomitant]
     Active Substance: METHYLPREDNISOLONE
     Indication: Bronchospasm
     Dosage: 20 MG /24H
     Route: 042
     Dates: start: 20230921
  5. VANCOMYCIN [Concomitant]
     Active Substance: VANCOMYCIN
     Indication: Urinary tract infection
     Dosage: 800 MILLIGRAMS EVERY 12 HOURS
     Route: 042
     Dates: start: 20230919

REACTIONS (3)
  - Epilepsy [Recovered/Resolved]
  - Hypomagnesaemia [Recovered/Resolved]
  - Hypocalcaemia [Recovered/Resolved]

NARRATIVE: CASE EVENT DATE: 20230922
